FAERS Safety Report 6698673-6 (Version None)
Quarter: 2010Q2

REPORT INFORMATION
  Report Type: 
  Country: None (occurrence: None)
  Receive Date: 20100427
  Receipt Date: 20091023
  Transmission Date: 20101027
  Serious: No
  Sender: FDA-Public Use
  Company Number: US-ASTRAZENECA-2009SE22246

PATIENT
  Age: 23310 Day
  Sex: Female
  Weight: 54.4 kg

DRUGS (4)
  1. ZOMIG [Suspect]
     Indication: MIGRAINE
     Route: 048
     Dates: start: 20070101
  2. ESTRACE PLUS [Concomitant]
  3. ULTRAM [Concomitant]
  4. VISTRAIL [Concomitant]

REACTIONS (6)
  - ASTHENIA [None]
  - DIZZINESS [None]
  - DYSSTASIA [None]
  - HYPERHIDROSIS [None]
  - PARAESTHESIA [None]
  - PERIPHERAL COLDNESS [None]
